FAERS Safety Report 4949030-1 (Version None)
Quarter: 2006Q1

REPORT INFORMATION
  Report Type: 
  Country: None (occurrence: None)
  Receive Date: 20060321
  Receipt Date: 20060313
  Transmission Date: 20060701
  Serious: Yes (Other)
  Sender: FDA-Public Use
  Company Number: US-GLAXOSMITHKLINE-A0597320A

PATIENT
  Age: 41 Year
  Sex: Female

DRUGS (2)
  1. LAMICTAL [Suspect]
     Dosage: 450MG TWICE PER DAY
     Route: 048
     Dates: start: 20051001
  2. NO CONCURRENT MEDICATION [Concomitant]

REACTIONS (4)
  - AURA [None]
  - CONVULSION [None]
  - DIZZINESS [None]
  - DYSARTHRIA [None]
